FAERS Safety Report 22278980 (Version 1)
Quarter: 2023Q2

REPORT INFORMATION
  Report Type: Report from Study
  Country: US (occurrence: US)
  Receive Date: 20230503
  Receipt Date: 20230503
  Transmission Date: 20230722
  Serious: No
  Sender: FDA-Public Use
  Company Number: US-002147023-NVSC2023US100105

PATIENT
  Sex: Male

DRUGS (2)
  1. FLUOROURACIL [Suspect]
     Active Substance: FLUOROURACIL
     Indication: Adenocarcinoma pancreas
     Dosage: EVERY 2 WEEKS FOR FIRST 4 WEEKS OF 6-WEEK CYCLE
     Route: 065
     Dates: start: 202211, end: 202302
  2. OXALIPLATIN [Suspect]
     Active Substance: OXALIPLATIN
     Indication: Adenocarcinoma pancreas
     Dosage: EVERY 2 WEEKS FOR FIRST 4 WEEKS OF 6-WEEK CYCLE
     Route: 065
     Dates: start: 202211, end: 202302

REACTIONS (1)
  - Drug intolerance [Unknown]
